FAERS Safety Report 13168274 (Version 1)
Quarter: 2017Q1

REPORT INFORMATION
  Report Type: Spontaneous
  Country: US (occurrence: DK)
  Receive Date: 20170131
  Receipt Date: 20170131
  Transmission Date: 20170428
  Serious: Yes (Death)
  Sender: FDA-Public Use
  Company Number: DK-STI PHARMA LLC-1062573

PATIENT
  Age: 12 Month
  Sex: Female
  Weight: 9 kg

DRUGS (9)
  1. PROLEUKIN [Suspect]
     Active Substance: ALDESLEUKIN
  2. MOXIFLOXACIN HYDROCHLORIDE. [Suspect]
     Active Substance: MOXIFLOXACIN HYDROCHLORIDE
  3. AMIKACIN SULFATE. [Suspect]
     Active Substance: AMIKACIN SULFATE
  4. ETHAMBUTOL HYDROCHLORIDE. [Suspect]
     Active Substance: ETHAMBUTOL HYDROCHLORIDE
  5. ACETAMINOPHEN. [Suspect]
     Active Substance: ACETAMINOPHEN
  6. FLUCONAZOLE. [Suspect]
     Active Substance: FLUCONAZOLE
  7. ACYCLOVIR. [Suspect]
     Active Substance: ACYCLOVIR
  8. BACTRIM [Suspect]
     Active Substance: SULFAMETHOXAZOLE\TRIMETHOPRIM
  9. ISONIAZID. [Suspect]
     Active Substance: ISONIAZID

REACTIONS (1)
  - Death [Fatal]
